FAERS Safety Report 16929097 (Version 2)
Quarter: 2019Q4

REPORT INFORMATION
  Report Type: Spontaneous
  Country: ES (occurrence: ES)
  Receive Date: 20191017
  Receipt Date: 20191110
  Transmission Date: 20200122
  Serious: Yes (Life-Threatening, Hospitalization)
  Sender: FDA-Public Use
  Company Number: NVSC2019ES002090

PATIENT
  Age: 81 Year
  Sex: Male

DRUGS (1)
  1. RYDAPT [Suspect]
     Active Substance: MIDOSTAURIN
     Indication: SYSTEMIC MASTOCYTOSIS
     Dosage: 2 OT, Q12H
     Route: 048
     Dates: start: 20190619

REACTIONS (1)
  - Coronary artery insufficiency [Recovered/Resolved]

NARRATIVE: CASE EVENT DATE: 20191023
